FAERS Safety Report 5531048-1 (Version None)
Quarter: 2007Q4

REPORT INFORMATION
  Report Type: 
  Country: None (occurrence: None)
  Receive Date: 20071130
  Receipt Date: 20071128
  Transmission Date: 20080405
  Serious: Yes (Death)
  Sender: FDA-Public Use
  Company Number: FI-ROXANE LABORATORIES, INC-2007-BP-25143RO

PATIENT
  Age: 77 Year
  Sex: Male

DRUGS (2)
  1. FLUCONAZOLE [Suspect]
     Route: 048
  2. ATORVASTATIN [Suspect]
     Route: 048

REACTIONS (2)
  - MULTI-ORGAN FAILURE [None]
  - RHABDOMYOLYSIS [None]
